FAERS Safety Report 17864703 (Version 1)
Quarter: 2020Q2

REPORT INFORMATION
  Report Type: Spontaneous
  Country: US (occurrence: US)
  Receive Date: 20200605
  Receipt Date: 20200605
  Transmission Date: 20200714
  Serious: No
  Sender: FDA-Public Use
  Company Number: US-ASTRAZENECA-2020SE71003

PATIENT
  Age: 89 Year
  Sex: Female
  Weight: 65.8 kg

DRUGS (7)
  1. TUMS [Concomitant]
     Active Substance: CALCIUM CARBONATE
     Dosage: 2 DF 9( TUMS AT NIGHT)
  2. JANUVIA [Concomitant]
     Active Substance: SITAGLIPTIN PHOSPHATE
  3. PRILOSEC [Concomitant]
     Active Substance: OMEPRAZOLE MAGNESIUM
     Dosage: UNK, DAILY (2 PRILOSEC A DAY)
  4. NEXIUM 24HR [Suspect]
     Active Substance: ESOMEPRAZOLE MAGNESIUM
     Indication: INSOMNIA
     Dosage: 1 DF, 1X/DAY (1 NEXIUM 24HR EVERY MORNING WITH BREAKFAST)
     Route: 048
     Dates: start: 2018
  5. NEXIUM 24HR [Suspect]
     Active Substance: ESOMEPRAZOLE MAGNESIUM
     Indication: MYOCARDIAL INFARCTION
     Dosage: 1 DF, 1X/DAY (1 NEXIUM 24HR EVERY MORNING WITH BREAKFAST)
     Route: 048
     Dates: start: 2018
  6. NEXIUM 24HR [Suspect]
     Active Substance: ESOMEPRAZOLE MAGNESIUM
     Indication: PAIN
     Dosage: 1 DF, 1X/DAY (1 NEXIUM 24HR EVERY MORNING WITH BREAKFAST)
     Route: 048
     Dates: start: 2018
  7. NEXIUM 24HR [Suspect]
     Active Substance: ESOMEPRAZOLE MAGNESIUM
     Indication: GASTROOESOPHAGEAL REFLUX DISEASE
     Dosage: 1 DF, 1X/DAY (1 NEXIUM 24HR EVERY MORNING WITH BREAKFAST)
     Route: 048
     Dates: start: 2018

REACTIONS (2)
  - Body height decreased [Unknown]
  - Drug ineffective [Unknown]
